FAERS Safety Report 6205331-0 (Version None)
Quarter: 2009Q2

REPORT INFORMATION
  Report Type: 
  Country: None (occurrence: None)
  Receive Date: 20090527
  Receipt Date: 20090310
  Transmission Date: 20091009
  Serious: No
  Sender: FDA-Public Use
  Company Number: US-ABBOTT-09P-163-0561875-00

PATIENT
  Sex: Female

DRUGS (6)
  1. SIMCOR [Suspect]
     Indication: HYPERCHOLESTEROLAEMIA
     Dosage: 500/20MG
     Route: 048
     Dates: start: 20090303
  2. SYNTHROID [Concomitant]
     Indication: DRUG USE FOR UNKNOWN INDICATION
  3. PROTNIX [Concomitant]
     Indication: DRUG USE FOR UNKNOWN INDICATION
  4. AXID [Concomitant]
     Indication: DRUG USE FOR UNKNOWN INDICATION
  5. RECLAST [Concomitant]
     Indication: DRUG USE FOR UNKNOWN INDICATION
  6. CALTRATE [Concomitant]
     Indication: DRUG USE FOR UNKNOWN INDICATION

REACTIONS (2)
  - DIZZINESS [None]
  - HEADACHE [None]
